FAERS Safety Report 7692810-2 (Version None)
Quarter: 2011Q3

REPORT INFORMATION
  Report Type: 
  Country: None (occurrence: None)
  Receive Date: 20110819
  Receipt Date: 20110809
  Transmission Date: 20111222
  Serious: Yes (Hospitalization, Other)
  Sender: FDA-Public Use
  Company Number: BR-ELI_LILLY_AND_COMPANY-BR201107005732

PATIENT
  Age: 69 Year
  Sex: Male

DRUGS (8)
  1. BAMIFIX [Concomitant]
  2. LEVEMIR [Concomitant]
     Dosage: 34 IU, BID
  3. SPIRIVA [Concomitant]
  4. FORMOTEROL FUMARATE [Concomitant]
  5. ASPIRIN [Concomitant]
     Dosage: 100 MG, QD
  6. HYTRIN [Concomitant]
  7. BYETTA [Suspect]
     Dosage: 5 UG, BID
     Route: 058
  8. LOSARTAN POTASSIUM [Concomitant]
     Dosage: 25 MG, BID

REACTIONS (2)
  - RENAL FAILURE [None]
  - PNEUMONIA [None]
